FAERS Safety Report 7122215-4 (Version None)
Quarter: 2010Q4

REPORT INFORMATION
  Report Type: 
  Country: None (occurrence: None)
  Receive Date: 20101124
  Receipt Date: 20101115
  Transmission Date: 20110411
  Serious: Yes (Other)
  Sender: FDA-Public Use
  Company Number: US-PFIZER INC-2010149498

PATIENT
  Sex: Female

DRUGS (13)
  1. MEDROL [Suspect]
     Dosage: 2 MG, 1X/DAY
  2. REMICADE [Suspect]
     Indication: RHEUMATOID ARTHRITIS
     Dosage: 600 MG, 1 IN 6 WEEKS
     Dates: start: 20100207
  3. FOLIC ACID [Concomitant]
     Dosage: 1 MG, 1X/DAY
  4. TRAMADOL [Concomitant]
     Indication: PAIN
     Dosage: 1 IN 1 AS NEEDED
  5. LEXAPRO [Concomitant]
     Dosage: 10 MG, 1X/DAY
  6. METHOTREXATE [Concomitant]
     Dosage: 1 ML, WEEKLY
  7. CELEBREX [Concomitant]
     Dosage: 200 MG, 2X/DAY
  8. DIOVAN HCT [Concomitant]
     Dosage: 80 MG, 1X/DAY
  9. NEXIUM [Concomitant]
     Dosage: 40 MG, 1X/DAY
  10. METOPROLOL [Concomitant]
     Dosage: 25 MG, 1X/DAY
  11. SIMVASTATIN [Concomitant]
     Dosage: 80 MG, 1X/DAY
  12. VITAMINS NOS [Concomitant]
     Dosage: UNK
  13. CITRACAL + D [Concomitant]
     Dosage: UNK

REACTIONS (1)
  - WEIGHT INCREASED [None]
